FAERS Safety Report 16265787 (Version 1)
Quarter: 2019Q2

REPORT INFORMATION
  Report Type: Spontaneous
  Country: CN (occurrence: CN)
  Receive Date: 20190502
  Receipt Date: 20190502
  Transmission Date: 20190711
  Serious: Yes (Other)
  Sender: FDA-Public Use
  Company Number: CN-BAXTER-2019BAX008624

PATIENT
  Age: 46 Year
  Sex: Female
  Weight: 53 kg

DRUGS (4)
  1. ENDOXAN [Suspect]
     Active Substance: CYCLOPHOSPHAMIDE
     Indication: BREAST CANCER FEMALE
     Dosage: DOSAGE FORM: INJECTION, ENDOXAN (CYCLOPHOSPHAMIDE FOR INJECTION) 910 MG + NS 50ML DUE TO THE 1ST CHE
     Route: 041
     Dates: start: 20190308, end: 20190308
  2. 0.9% SODIUM CHLORIDE INJECTION [Suspect]
     Active Substance: SODIUM CHLORIDE
     Dosage: TAXOTERE (DOCETAXEL INJECTION) 114 MG + NS 250 ML DUE TO THE 1ST CHEMOTHERAPY
     Route: 041
     Dates: start: 20190308, end: 20190308
  3. 0.9% SODIUM CHLORIDE INJECTION [Suspect]
     Active Substance: SODIUM CHLORIDE
     Indication: MEDICATION DILUTION
     Dosage: ENDOXAN (CYCLOPHOSPHAMIDE FOR INJECTION) 910 MG + NS 50ML DUE TO THE 1ST CHEMOTHERAPY
     Route: 041
     Dates: start: 20190308, end: 20190308
  4. TAXOTERE [Suspect]
     Active Substance: DOCETAXEL
     Indication: BREAST CANCER FEMALE
     Dosage: TAXOTERE (DOCETAXEL INJECTION) 114 MG + NS 250 ML DUE TO THE 1ST CHEMOTHERAPY
     Route: 041
     Dates: start: 20190308, end: 20190308

REACTIONS (1)
  - Agranulocytosis [Recovered/Resolved]

NARRATIVE: CASE EVENT DATE: 20190314
